FAERS Safety Report 8212512-3 (Version None)
Quarter: 2012Q1

REPORT INFORMATION
  Report Type: 
  Country: None (occurrence: None)
  Receive Date: 20120315
  Receipt Date: 20120308
  Transmission Date: 20120608
  Serious: Yes (Other)
  Sender: FDA-Public Use
  Company Number: FR-GLAXOSMITHKLINE-B0786934A

PATIENT
  Sex: Female

DRUGS (3)
  1. NORVIR [Suspect]
     Indication: HIV INFECTION
     Dosage: 100MG PER DAY
     Route: 065
     Dates: start: 20090701, end: 20120207
  2. REYATAZ [Suspect]
     Indication: HIV INFECTION
     Dosage: 300MG PER DAY
     Route: 048
     Dates: start: 20090701, end: 20120207
  3. FLUTICASONE PROPIONATE/SALMETEROL [Suspect]
     Indication: ASTHMA
     Route: 055
     Dates: end: 20120207

REACTIONS (8)
  - MUSCLE ATROPHY [None]
  - HYPERCORTICOIDISM [None]
  - WEIGHT INCREASED [None]
  - SKIN STRIAE [None]
  - SKIN FRAGILITY [None]
  - DRUG INTERACTION [None]
  - HAEMATOMA [None]
  - HYPERTENSION [None]
